FAERS Safety Report 7792283-5 (Version None)
Quarter: 2011Q4

REPORT INFORMATION
  Report Type: 
  Country: None (occurrence: None)
  Receive Date: 20111003
  Receipt Date: 20110928
  Transmission Date: 20120403
  Serious: Yes (Other)
  Sender: FDA-Public Use
  Company Number: US-PFIZER INC-2011098140

PATIENT
  Sex: Female
  Weight: 77 kg

DRUGS (6)
  1. PROZAC [Concomitant]
     Indication: DEPRESSION
     Dosage: 20 MG, UNK
     Route: 065
  2. PREPARATION H MEDICATED WIPES [Suspect]
     Indication: HAEMORRHOIDS
     Dosage: UNK
     Route: 065
     Dates: start: 20100101, end: 20110101
  3. BUPROPION HYDROCHLORIDE [Concomitant]
     Indication: DEPRESSION
     Dosage: UNK
     Route: 065
  4. ACETYLSALICYLIC ACID [Concomitant]
     Dosage: 81 MG, DAILY
     Route: 065
  5. SIMVASTATIN [Concomitant]
     Indication: BLOOD CHOLESTEROL INCREASED
     Dosage: UNK
     Route: 065
  6. LAMOTRIGINE [Concomitant]
     Indication: DEPRESSION
     Dosage: 100 MG, UNK
     Route: 065

REACTIONS (3)
  - SWELLING [None]
  - HAEMORRHOIDS [None]
  - APPLICATION SITE PAIN [None]
